FAERS Safety Report 7347965-6 (Version None)
Quarter: 2011Q1

REPORT INFORMATION
  Report Type: 
  Country: None (occurrence: None)
  Receive Date: 20110311
  Receipt Date: 20110225
  Transmission Date: 20110831
  Serious: Yes (Hospitalization)
  Sender: FDA-Public Use
  Company Number: US-BAYER-2011-022086

PATIENT
  Sex: Female
  Weight: 68.027 kg

DRUGS (4)
  1. YASMIN [Suspect]
     Indication: CONTRACEPTION
     Dosage: UNK
     Dates: start: 20030221, end: 20040216
  2. ALBUTEROL [Concomitant]
     Route: 045
  3. DIFLUCAN [Concomitant]
     Dosage: 150 MG, UNK
     Route: 048
     Dates: start: 20040206
  4. LEVAQUIN [Concomitant]
     Dosage: 500 MG, UNK
     Route: 048
     Dates: start: 20040213

REACTIONS (2)
  - PULMONARY EMBOLISM [None]
  - DYSPNOEA [None]
